FAERS Safety Report 9203330 (Version 1)
Quarter: 2013Q1

REPORT INFORMATION
  Report Type: Spontaneous
  Country: US (occurrence: None)
  Receive Date: 20120709
  Receipt Date: 20120709
  Transmission Date: 20140127
  Serious: No
  Sender: FDA-Public Use
  Company Number: 2012HGS-003714

PATIENT
  Age: 58 Year
  Sex: Male
  Weight: 68.95 kg

DRUGS (11)
  1. BENLYSTA [Suspect]
     Indication: SYSTEMIC LUPUS ERYTHEMATOSUS
     Dosage: 10 MG/KG, 1 IN 28 D, INTRAVENOUS DRIP
     Route: 041
     Dates: start: 20111123
  2. ASPIRIN (ACETYLSALICYLIC ACID)(ACETYLSALICYLIC ACID) [Concomitant]
  3. CALCIUM (CALCIUM) (CALCIUM) [Concomitant]
  4. VITAMIN D (ERGOCALCIFEROL) (ERGOCALCIFEROL) [Concomitant]
  5. GLUCOSAMINE CHONDROITIN (JOINT FOOD) (CHONDROITIN SULFATE, GLUCOSAMIDE SULFATE) [Concomitant]
  6. VITAMIN B1 (THIAMINE HYDROCHLORIDE) (THIAMINE HYDROCHLORIDE) [Concomitant]
  7. PLAQUENIL (HYDROXYCHLOROQUINE SULFATE) (HYDROCHLOROQUINE SULFATE) [Concomitant]
  8. OMEPRAZOLE (OMEPRAZOLE) (OMEPRAZOLE) [Concomitant]
  9. LISINOPRIL (LISINOPRIL) (LISINOPRIL) [Concomitant]
  10. AMLODIPINE BESYLATE (AMLODIPINE BESILATE) (AMLODIPINE BESILATE) [Concomitant]
  11. LEUCOVORIN (FOLINIC ACID) (FOLINIC ACID) [Concomitant]

REACTIONS (3)
  - Haemorrhagic diathesis [None]
  - Increased tendency to bruise [None]
  - Impaired healing [None]
